FAERS Safety Report 5953900-5 (Version None)
Quarter: 2008Q4

REPORT INFORMATION
  Report Type: 
  Country: None (occurrence: None)
  Receive Date: 20081114
  Receipt Date: 20081105
  Transmission Date: 20090506
  Serious: Yes (Hospitalization)
  Sender: FDA-Public Use
  Company Number: US-B.I. PHARMACEUTICALS,INC./RIDGEFIELD-2008-BP-16844BP

PATIENT
  Age: 56 Year
  Sex: Male

DRUGS (3)
  1. MOBIC [Suspect]
     Indication: BACK PAIN
     Route: 048
     Dates: start: 20051003, end: 20060808
  2. PRILOSEC [Concomitant]
  3. HYDROCODONE [Concomitant]

REACTIONS (6)
  - BLOOD TRIGLYCERIDES INCREASED [None]
  - CHOLECYSTECTOMY [None]
  - COLITIS [None]
  - HERNIA [None]
  - LIVER DISORDER [None]
  - UNEVALUABLE EVENT [None]
